FAERS Safety Report 21279306 (Version 4)
Quarter: 2022Q4

REPORT INFORMATION
  Report Type: Spontaneous
  Country: US (occurrence: US)
  Receive Date: 20220901
  Receipt Date: 20221212
  Transmission Date: 20230113
  Serious: No
  Sender: FDA-Public Use
  Company Number: US-BRISTOL-MYERS SQUIBB COMPANY-2022-098200

PATIENT
  Age: 65 Year
  Sex: Female

DRUGS (1)
  1. ORENCIA [Suspect]
     Active Substance: ABATACEPT
     Indication: Product used for unknown indication
     Route: 058

REACTIONS (7)
  - Gastric disorder [Unknown]
  - Oral herpes [Unknown]
  - COVID-19 [Unknown]
  - Myalgia [Unknown]
  - Tendon pain [Unknown]
  - Gait inability [Unknown]
  - Hypertension [Unknown]

NARRATIVE: CASE EVENT DATE: 20221017
